FAERS Safety Report 18191171 (Version 1)
Quarter: 2020Q3

REPORT INFORMATION
  Report Type: Spontaneous
  Country: DE (occurrence: DE)
  Receive Date: 20200825
  Receipt Date: 20200825
  Transmission Date: 20201103
  Serious: Yes (Hospitalization)
  Sender: FDA-Public Use
  Company Number: DE-TEVA-2020-DE-1816960

PATIENT
  Age: 58 Year
  Sex: Female

DRUGS (5)
  1. DEKRISTOL 20000I.E. [Concomitant]
     Dosage: 20,000 IU, TWICE A WEEK
  2. RAMIPRIL. [Concomitant]
     Active Substance: RAMIPRIL
     Dosage: 5 MILLIGRAM DAILY;  1?0?0?0
  3. HCT [Concomitant]
     Active Substance: HYDROCHLOROTHIAZIDE
     Dosage: 12.5 MILLIGRAM DAILY; 1?0?0?0
  4. OXYCODON [Suspect]
     Active Substance: OXYCODONE
     Dosage: 30 MILLIGRAM DAILY; 1?1?1?0
  5. LETROZOL [Suspect]
     Active Substance: LETROZOLE
     Dosage: 2.5 MILLIGRAM DAILY;  1?0?0?0

REACTIONS (3)
  - Fall [Unknown]
  - Rib fracture [Unknown]
  - Fracture [Unknown]
